FAERS Safety Report 8301404-7 (Version None)
Quarter: 2012Q2

REPORT INFORMATION
  Report Type: 
  Country: None (occurrence: None)
  Receive Date: 20120420
  Receipt Date: 20120406
  Transmission Date: 20120825
  Serious: Yes (Life-Threatening, Hospitalization, Other)
  Sender: FDA-Public Use
  Company Number: JP-ROCHE-1041758

PATIENT
  Sex: Female
  Weight: 30 kg

DRUGS (17)
  1. FLUOROURACIL [Concomitant]
     Route: 041
     Dates: start: 20080609, end: 20090518
  2. OXALIPLATIN [Concomitant]
     Indication: COLON CANCER RECURRENT
     Route: 041
     Dates: start: 20080609, end: 20090518
  3. AVASTIN [Suspect]
     Route: 041
     Dates: start: 20090608, end: 20110111
  4. FLUOROURACIL [Concomitant]
     Indication: COLON CANCER RECURRENT
     Route: 040
     Dates: start: 20080609, end: 20090518
  5. FLUOROURACIL [Concomitant]
     Route: 041
     Dates: start: 20090608, end: 20110111
  6. EMEND [Concomitant]
     Dosage: DOSAGE IS UNCERTAIN.
     Route: 048
     Dates: start: 20100701
  7. FLUOROURACIL [Concomitant]
     Route: 040
     Dates: start: 20110301, end: 20120124
  8. LEVOLEUCOVORIN CALCIUM [Concomitant]
     Route: 041
     Dates: start: 20110301, end: 20120124
  9. AVASTIN [Suspect]
     Indication: COLON CANCER RECURRENT
     Route: 041
     Dates: start: 20080609, end: 20090518
  10. IRINOTECAN HYDROCHLORIDE [Concomitant]
     Indication: COLON CANCER RECURRENT
     Route: 041
     Dates: start: 20090608, end: 20110111
  11. AVASTIN [Suspect]
     Route: 041
     Dates: start: 20110301, end: 20120123
  12. FLUOROURACIL [Concomitant]
     Route: 040
     Dates: start: 20090608, end: 20110111
  13. LEVOLEUCOVORIN CALCIUM [Concomitant]
     Route: 041
     Dates: start: 20090608, end: 20110111
  14. IRINOTECAN HYDROCHLORIDE [Concomitant]
     Route: 041
     Dates: start: 20110301, end: 20120123
  15. FLUOROURACIL [Concomitant]
     Route: 041
     Dates: start: 20110301, end: 20120124
  16. LEVOLEUCOVORIN CALCIUM [Concomitant]
     Indication: COLON CANCER RECURRENT
     Route: 041
     Dates: start: 20080609, end: 20090518
  17. OXYCONTIN [Concomitant]
     Indication: CANCER PAIN
     Dosage: DOSAGE IS UNCERTAIN.
     Route: 048
     Dates: start: 20110926

REACTIONS (4)
  - HAEMOPTYSIS [None]
  - PNEUMOTHORAX [None]
  - LUNG INFECTION [None]
  - INTESTINAL OBSTRUCTION [None]
